FAERS Safety Report 15573445 (Version 1)
Quarter: 2018Q4

REPORT INFORMATION
  Report Type: Spontaneous
  Country: IT (occurrence: IT)
  Receive Date: 20181101
  Receipt Date: 20181101
  Transmission Date: 20190205
  Serious: Yes (Other)
  Sender: FDA-Public Use
  Company Number: IT-TEVA-2018-IT-970953

PATIENT
  Age: 10 Year
  Sex: Male
  Weight: 34 kg

DRUGS (3)
  1. VINCRISTINA TEVA [Suspect]
     Active Substance: VINCRISTINE
     Indication: HODGKIN^S DISEASE
     Route: 042
     Dates: start: 20180406, end: 20180420
  2. DOXORUBICINA ACCORD HEALTHCARE ITALIA [Concomitant]
     Active Substance: DOXORUBICIN HYDROCHLORIDE
     Route: 042
     Dates: start: 20180406, end: 20180420
  3. ETOPOSIDE SANDOZ [Concomitant]
     Active Substance: ETOPOSIDE
     Route: 042
     Dates: start: 20180406, end: 20180410

REACTIONS (1)
  - Neuropathy peripheral [Recovered/Resolved]

NARRATIVE: CASE EVENT DATE: 20180420
